FAERS Safety Report 5341721-6 (Version None)
Quarter: 2007Q2

REPORT INFORMATION
  Report Type: 
  Country: None (occurrence: None)
  Receive Date: 20070529
  Receipt Date: 20070529
  Transmission Date: 20071010
  Serious: Yes (Hospitalization)
  Sender: FDA-Public Use
  Company Number: None

PATIENT
  Age: 77 Year
  Sex: Male

DRUGS (2)
  1. SIMVASTATIN [Suspect]
     Indication: HYPERLIPIDAEMIA
     Dosage: 80MG EVERY DAY PO
     Route: 048
     Dates: start: 20070205, end: 20070504
  2. NIACIN [Suspect]
     Dosage: 1000MG EVERY DAY PO
     Route: 048

REACTIONS (3)
  - HEPATIC ENZYME INCREASED [None]
  - RHABDOMYOLYSIS [None]
  - TRANSAMINASES INCREASED [None]
